FAERS Safety Report 12583439 (Version 1)
Quarter: 2016Q3

REPORT INFORMATION
  Report Type: Spontaneous
  Country: HK (occurrence: HK)
  Receive Date: 20160722
  Receipt Date: 20160722
  Transmission Date: 20161109
  Serious: Yes (Hospitalization, Other)
  Sender: FDA-Public Use
  Company Number: HK-ASTRAZENECA-2016SE78818

PATIENT
  Age: 61 Year
  Sex: Female

DRUGS (1)
  1. OSIMERTINIB [Suspect]
     Active Substance: OSIMERTINIB
     Indication: LUNG NEOPLASM MALIGNANT
     Route: 048
     Dates: start: 20160608, end: 20160714

REACTIONS (4)
  - Metastases to bone [Unknown]
  - Malignant neoplasm progression [Not Recovered/Not Resolved]
  - Lymphangiosis carcinomatosa [Unknown]
  - Pleural effusion [Unknown]

NARRATIVE: CASE EVENT DATE: 2016
